FAERS Safety Report 5628037-5 (Version None)
Quarter: 2008Q1

REPORT INFORMATION
  Report Type: 
  Country: None (occurrence: None)
  Receive Date: 20080215
  Receipt Date: 20080208
  Transmission Date: 20080703
  Serious: Yes (Death, Hospitalization, Other)
  Sender: FDA-Public Use
  Company Number: JP-ELI_LILLY_AND_COMPANY-JP200801006435

PATIENT
  Sex: Female

DRUGS (9)
  1. HUMULIN 70/30 [Suspect]
     Dosage: 20 IU, UNK
     Route: 058
     Dates: end: 20071220
  2. HUMULIN 70/30 [Suspect]
     Dosage: 20 IU, UNK
     Route: 058
     Dates: start: 20080112, end: 20080128
  3. NOVOLIN R [Concomitant]
     Dosage: UNK, UNK
     Dates: start: 20071221, end: 20080111
  4. NOVOLIN R [Concomitant]
     Dosage: UNK, UNK
     Dates: start: 20080124
  5. DIGOXIN [Concomitant]
     Dosage: UNK, UNK
     Dates: end: 20080119
  6. TORSEMIDE [Concomitant]
     Dates: end: 20071219
  7. GASTER D [Concomitant]
     Dates: end: 20071219
  8. LASIX [Concomitant]
     Dates: end: 20071219
  9. TOPHARMIN [Concomitant]
     Dates: end: 20071229

REACTIONS (8)
  - ANOREXIA [None]
  - CARDIAC FAILURE ACUTE [None]
  - DEHYDRATION [None]
  - DRUG INEFFECTIVE [None]
  - DYSPNOEA [None]
  - HYPERGLYCAEMIA [None]
  - LIVER DISORDER [None]
  - PYREXIA [None]
